FAERS Safety Report 23788524 (Version 4)
Quarter: 2024Q3

REPORT INFORMATION
  Report Type: Report from Study
  Country: NL (occurrence: NL)
  Receive Date: 20240426
  Receipt Date: 20240916
  Transmission Date: 20241016
  Serious: Yes (Hospitalization, Other)
  Sender: ABBVIE
  Company Number: NL-ABBVIE-5734477

PATIENT
  Sex: Female

DRUGS (9)
  1. CARBIDOPA\LEVODOPA [Suspect]
     Active Substance: CARBIDOPA\LEVODOPA
     Indication: Parkinson^s disease
     Dosage: MD: 11.0ML, CD: 5.1ML/H, ED: 3.00ML, CND: 3.7ML/H, END: 2.20ML;REMAINS AT 24 HOURS
     Route: 050
     Dates: start: 20240820
  2. CARBIDOPA\LEVODOPA [Suspect]
     Active Substance: CARBIDOPA\LEVODOPA
     Dosage: MD 11.0 ML; CD 4.5 ML/H; ED 2.7 ML; CND 2.9 ML/H; END 2.2 ML?DURATION TEXT: GOES TO 24 HOURS
     Route: 050
     Dates: start: 20240412, end: 20240423
  3. CARBIDOPA\LEVODOPA [Suspect]
     Active Substance: CARBIDOPA\LEVODOPA
     Dosage: CND 2.3 ML/H; END 1.0 ML?DURATION TEXT: GOES TO 24 HOURS
     Route: 050
     Dates: start: 20240201, end: 20240211
  4. CARBIDOPA\LEVODOPA [Suspect]
     Active Substance: CARBIDOPA\LEVODOPA
     Dosage: CND 2.9 ML/H; END 2.2 ML, DURATION TEXT: REMAINS AT 24
     Route: 050
     Dates: start: 20240423, end: 20240502
  5. CARBIDOPA\LEVODOPA [Suspect]
     Active Substance: CARBIDOPA\LEVODOPA
     Dosage: MD 11.0 ML; CD 4.5 ML/H; ED 2.7 ML?DURATION TEXT: GOES TO 24 HOURS
     Route: 050
     Dates: start: 20240411, end: 20240412
  6. CARBIDOPA\LEVODOPA [Suspect]
     Active Substance: CARBIDOPA\LEVODOPA
     Dosage: DURATION TEXT: GOES TO 24 HOURS?MD 11.0 ML; CD 4.5 ML/H; ED 2.7 ML; CND 2.9 ML/H; END 2.2 ML
     Route: 050
     Dates: start: 20240212, end: 20240412
  7. CARBIDOPA\LEVODOPA [Suspect]
     Active Substance: CARBIDOPA\LEVODOPA
     Dosage: MD 11.5 ML; CD 4.5 ML/H; ED 2.0 ML?DURATION TEXT: GOES TO 16 HOURS
     Route: 050
     Dates: start: 20231106, end: 20240201
  8. CARBIDOPA\LEVODOPA [Suspect]
     Active Substance: CARBIDOPA\LEVODOPA
     Dosage: MD 11.0 ML; CD 4.5 ML/H; ED 2.7 ML; REMAINS AT 24 HOURS
     Route: 050
     Dates: start: 20240724, end: 20240820
  9. CARBIDOPA\LEVODOPA [Suspect]
     Active Substance: CARBIDOPA\LEVODOPA
     Dosage: CND 3.2 ML/H; END 2.2 ML?DURATION TEXT: REMAINS AT 24
     Route: 050
     Dates: start: 20240502, end: 20240724

REACTIONS (19)
  - Knee operation [Unknown]
  - Freezing phenomenon [Not Recovered/Not Resolved]
  - Therapeutic product effect incomplete [Not Recovered/Not Resolved]
  - Tremor [Not Recovered/Not Resolved]
  - Constipation [Unknown]
  - Loss of personal independence in daily activities [Not Recovered/Not Resolved]
  - On and off phenomenon [Not Recovered/Not Resolved]
  - Unevaluable event [Not Recovered/Not Resolved]
  - Gait disturbance [Not Recovered/Not Resolved]
  - Dyskinesia [Not Recovered/Not Resolved]
  - Muscle rigidity [Not Recovered/Not Resolved]
  - Fatigue [Not Recovered/Not Resolved]
  - Tension [Not Recovered/Not Resolved]
  - Therapeutic product effect variable [Not Recovered/Not Resolved]
  - Bradykinesia [Not Recovered/Not Resolved]
  - Bowel movement irregularity [Recovered/Resolved]
  - Arthralgia [Not Recovered/Not Resolved]
  - Unevaluable event [Not Recovered/Not Resolved]
  - Stoma site erythema [Unknown]

NARRATIVE: CASE EVENT DATE: 20240301
